FAERS Safety Report 7253860-3 (Version None)
Quarter: 2011Q1

REPORT INFORMATION
  Report Type: 
  Country: None (occurrence: None)
  Receive Date: 20110129
  Receipt Date: 20100421
  Transmission Date: 20110831
  Serious: No
  Sender: FDA-Public Use
  Company Number: US-ABBOTT-10P-163-0640876-00

PATIENT
  Sex: Female

DRUGS (6)
  1. SYMBICORT [Concomitant]
     Indication: ASTHMA
  2. PERCOCET [Concomitant]
     Indication: PAIN MANAGEMENT
  3. HUMIRA [Suspect]
     Indication: PSORIATIC ARTHROPATHY
     Dates: start: 20100309
  4. LEXAPRO [Concomitant]
     Indication: ANTIDEPRESSANT THERAPY
  5. KLONOPIN [Concomitant]
     Indication: ANXIETY
  6. PREDNISONE [Concomitant]
     Indication: PSORIATIC ARTHROPATHY
     Route: 048

REACTIONS (2)
  - NIGHT SWEATS [None]
  - FATIGUE [None]
